FAERS Safety Report 24154347 (Version 1)
Quarter: 2024Q3

REPORT INFORMATION
  Report Type: Spontaneous
  Country: GB (occurrence: GB)
  Receive Date: 20240730
  Receipt Date: 20240730
  Transmission Date: 20241017
  Serious: Yes (Other)
  Sender: PFIZER
  Company Number: GB-PFIZER INC-202400223686

PATIENT
  Age: 38 Year
  Sex: Female

DRUGS (1)
  1. PAXLOVID [Suspect]
     Active Substance: NIRMATRELVIR\RITONAVIR
     Indication: COVID-19 treatment
     Dosage: UNK
     Dates: start: 20240723, end: 20240724

REACTIONS (12)
  - Hallucination [Unknown]
  - Myalgia [Unknown]
  - Pain [Unknown]
  - Nausea [Unknown]
  - Vertigo [Unknown]
  - Dizziness [Unknown]
  - Migraine [Unknown]
  - Fatigue [Unknown]
  - Emotional disorder [Unknown]
  - Abnormal dreams [Unknown]
  - Paraesthesia [Unknown]
  - Rash macular [Unknown]

NARRATIVE: CASE EVENT DATE: 20240723
